FAERS Safety Report 10727097 (Version 2)
Quarter: 2015Q2

REPORT INFORMATION
  Report Type: Spontaneous
  Country: IT (occurrence: IT)
  Receive Date: 20150121
  Receipt Date: 20150424
  Transmission Date: 20150821
  Serious: No
  Sender: FDA-Public Use
  Company Number: IT-ACTAVIS-2015-00424

PATIENT
  Age: 67 Year
  Sex: Female
  Weight: 66 kg

DRUGS (5)
  1. PANTOPRAZOLE SODIUM. [Concomitant]
     Active Substance: PANTOPRAZOLE SODIUM
     Indication: PREMEDICATION
     Dosage: 40 MG, UNKNOWN
     Route: 017
     Dates: start: 20141113, end: 20141113
  2. DOCETAXEL ACTAVIS [Suspect]
     Active Substance: DOCETAXEL
     Indication: CHEMOTHERAPY
     Dosage: 120 MG, CYCLICAL
     Route: 017
     Dates: start: 20141023, end: 20141113
  3. DESAMETASONE FOSF                  /00016002/ [Concomitant]
     Indication: PROPHYLAXIS OF NAUSEA AND VOMITING
     Dosage: 8 MG, UNKNOWN
     Route: 017
     Dates: start: 20141113, end: 20141113
  4. PLASIL                             /00041902/ [Concomitant]
     Active Substance: METOCLOPRAMIDE HYDROCHLORIDE
     Indication: PROPHYLAXIS OF NAUSEA AND VOMITING
     Dosage: 20 MG, UNKNOWN
     Route: 017
     Dates: start: 20141113, end: 20141113
  5. ONDANSETRON HIKMA [Concomitant]
     Indication: PROPHYLAXIS OF NAUSEA AND VOMITING
     Dosage: 8 MG, UNKNOWN
     Route: 017
     Dates: start: 20141113, end: 20141113

REACTIONS (2)
  - Dyspnoea [Recovered/Resolved]
  - Erythema [Recovered/Resolved]

NARRATIVE: CASE EVENT DATE: 20141113
